FAERS Safety Report 4726753-0 (Version None)
Quarter: 2005Q3

REPORT INFORMATION
  Report Type: 
  Country: None (occurrence: None)
  Receive Date: 20050725
  Receipt Date: 20050419
  Transmission Date: 20060218
  Serious: No
  Sender: FDA-Public Use
  Company Number: USA050496126

PATIENT
  Age: 24 Year
  Sex: Male

DRUGS (2)
  1. STRATTERA [Suspect]
     Dosage: 40 MG DAY
     Dates: start: 20050301
  2. WELLBUTRIN SR [Concomitant]

REACTIONS (2)
  - PENILE DISCHARGE [None]
  - PROTEIN URINE [None]
